FAERS Safety Report 8318219-6 (Version None)
Quarter: 2012Q2

REPORT INFORMATION
  Report Type: 
  Country: None (occurrence: None)
  Receive Date: 20120427
  Receipt Date: 20120416
  Transmission Date: 20120825
  Serious: Yes (Other)
  Sender: FDA-Public Use
  Company Number: CN-RANBAXY-2010R1-39887

PATIENT
  Age: 27 Year
  Sex: Female

DRUGS (2)
  1. CARBAMAZEPINE [Suspect]
     Indication: EPILEPSY
     Dosage: UNK
     Route: 065
  2. OXCARBAZEPINE [Suspect]
     Indication: EPILEPSY
     Dosage: UNK
     Route: 065

REACTIONS (2)
  - DRUG HYPERSENSITIVITY [None]
  - RASH [None]
